FAERS Safety Report 9487324 (Version 2)
Quarter: 2013Q4

REPORT INFORMATION
  Report Type: Spontaneous
  Country: US (occurrence: US)
  Receive Date: 20130829
  Receipt Date: 20131025
  Transmission Date: 20140711
  Serious: No
  Sender: FDA-Public Use
  Company Number: US-BAXTER-2013BAX033672

PATIENT
  Sex: Female

DRUGS (1)
  1. DIANEAL LOW CALCIUM [Suspect]
     Indication: PERITONEAL DIALYSIS
     Route: 033

REACTIONS (3)
  - Fall [Unknown]
  - Back injury [Unknown]
  - Muscle spasms [Unknown]
